FAERS Safety Report 19106076 (Version 11)
Quarter: 2024Q3

REPORT INFORMATION
  Report Type: Report from Study
  Country: US (occurrence: US)
  Receive Date: 20210407
  Receipt Date: 20240711
  Transmission Date: 20241017
  Serious: Yes (Hospitalization, Other)
  Sender: TAKEDA
  Company Number: US-TAKEDA-US202033627

PATIENT
  Age: 55 Year
  Sex: Female

DRUGS (2)
  1. HUMAN IMMUNOGLOBULIN G [Suspect]
     Active Substance: HUMAN IMMUNOGLOBULIN G
     Indication: Immunodeficiency common variable
     Dosage: 30 GRAM, Q2WEEKS
     Route: 058
  2. HUMAN IMMUNOGLOBULIN G [Suspect]
     Active Substance: HUMAN IMMUNOGLOBULIN G
     Indication: Primary immunodeficiency syndrome

REACTIONS (16)
  - Respiratory tract infection [Unknown]
  - Atrial fibrillation [Unknown]
  - Blood pressure increased [Recovering/Resolving]
  - Deep vein thrombosis [Unknown]
  - Ventricular tachycardia [Unknown]
  - COVID-19 [Recovered/Resolved]
  - Atypical pneumonia [Recovered/Resolved]
  - Asthma [Unknown]
  - Food allergy [Unknown]
  - Bronchitis [Recovered/Resolved]
  - Bone cyst [Unknown]
  - Respiratory syncytial virus infection [Unknown]
  - Limb injury [Unknown]
  - Gastrointestinal disorder [Unknown]
  - Irritable bowel syndrome [Unknown]
  - Malaise [Unknown]

NARRATIVE: CASE EVENT DATE: 20191201
